FAERS Safety Report 11109754 (Version 1)
Quarter: 2015Q2

REPORT INFORMATION
  Report Type: Report from Study
  Country: MA (occurrence: MA)
  Receive Date: 20150513
  Receipt Date: 20150513
  Transmission Date: 20150821
  Serious: Yes (Other)
  Sender: FDA-Public Use
  Company Number: MA-MYLANLABS-2015M1015577

PATIENT

DRUGS (5)
  1. RIFAMPIN. [Suspect]
     Active Substance: RIFAMPIN
     Indication: PLEURISY
     Route: 065
  2. KANAMYCIN [Concomitant]
     Active Substance: KANAMYCIN\KANAMYCIN A SULFATE
     Indication: PLEURISY
     Route: 065
  3. PYRAZINAMIDE. [Concomitant]
     Active Substance: PYRAZINAMIDE
     Indication: PLEURISY
     Route: 065
  4. ETHAMBUTOL [Concomitant]
     Active Substance: ETHAMBUTOL HYDROCHLORIDE
     Indication: PLEURISY
     Route: 065
  5. ISONIAZID. [Concomitant]
     Active Substance: ISONIAZID
     Indication: PLEURISY
     Route: 065

REACTIONS (1)
  - Pancytopenia [Recovered/Resolved]
